FAERS Safety Report 8171259-2 (Version None)
Quarter: 2012Q1

REPORT INFORMATION
  Report Type: 
  Country: None (occurrence: None)
  Receive Date: 20120104
  Receipt Date: 20111117
  Transmission Date: 20120608
  Serious: No
  Sender: FDA-Public Use
  Company Number: 2011HGS-002834

PATIENT
  Age: 34 Year
  Sex: Female

DRUGS (4)
  1. BENLYSTA [Suspect]
     Indication: SYSTEMIC LUPUS ERYTHEMATOSUS
     Dosage: 1 IN 28 D, INTRAVENOUS DRIP
     Route: 041
     Dates: start: 20110609
  2. PHENERGAN(PROMETHAZINE HYDROCHLORIDE)(PROMETHAZINE HYDROCHLORIDE) [Concomitant]
  3. HYDROOODONE(HYDROCODONE)(HYDROCODONE) [Concomitant]
  4. AMBIEN [Concomitant]

REACTIONS (2)
  - MIGRAINE [None]
  - INSOMNIA [None]
